FAERS Safety Report 4408414-0 (Version None)
Quarter: 2004Q3

REPORT INFORMATION
  Report Type: 
  Country: None (occurrence: None)
  Receive Date: 20040722
  Receipt Date: 20040719
  Transmission Date: 20050211
  Serious: Yes (Death, Hospitalization)
  Sender: FDA-Public Use
  Company Number: 2003-10-2014

PATIENT
  Age: 47 Year
  Sex: Male
  Weight: 100 kg

DRUGS (3)
  1. RIBAVIRIN [Suspect]
     Indication: HEPATITIS C
     Dosage: 600 MG QD BID
  2. DIDANOSINE ENTERIC COATED TABLETS [Suspect]
     Indication: HIV INFECTION
     Dosage: 400 MG QD
  3. PEG-INTRON [Suspect]
     Indication: HEPATITIS C
     Dosage: 150 MCG QWK

REACTIONS (9)
  - BODY TEMPERATURE DECREASED [None]
  - BOWEL SOUNDS ABNORMAL [None]
  - HEPATIC ENCEPHALOPATHY [None]
  - HEPATIC FAILURE [None]
  - INFLUENZA LIKE ILLNESS [None]
  - LACTIC ACIDOSIS [None]
  - MULTI-ORGAN FAILURE [None]
  - PANCREATITIS [None]
  - RENAL FAILURE [None]
